FAERS Safety Report 5124728-3 (Version None)
Quarter: 2006Q4

REPORT INFORMATION
  Report Type: 
  Country: None (occurrence: None)
  Receive Date: 20061011
  Receipt Date: 20061004
  Transmission Date: 20070319
  Serious: Yes (Hospitalization, Other)
  Sender: FDA-Public Use
  Company Number: US-AVENTIS-200618350US

PATIENT
  Sex: Female
  Weight: 65.45 kg

DRUGS (9)
  1. ARAVA                              /01414801/ [Suspect]
     Indication: RHEUMATOID ARTHRITIS
  2. ARAVA                              /01414801/ [Suspect]
     Dates: start: 20060901
  3. ARAVA                              /01414801/ [Suspect]
     Indication: OSTEOARTHRITIS
  4. ARAVA                              /01414801/ [Suspect]
     Dates: start: 20060901
  5. SPORANOX [Concomitant]
  6. PREDNISONE TAB [Concomitant]
     Dosage: DOSE: UNK
  7. ARTHRITIC MEDICATIONS [Concomitant]
     Dosage: DOSE: UNK
  8. IMMUNOSUPPRESSIVE AGENTS [Concomitant]
     Dosage: DOSE: UNK
  9. UNKNOWN DRUG [Concomitant]
     Dosage: DOSE: UNK

REACTIONS (13)
  - AMNESIA [None]
  - ARTHRALGIA [None]
  - BUNION [None]
  - CEREBROVASCULAR ACCIDENT [None]
  - CHRONIC OBSTRUCTIVE PULMONARY DISEASE [None]
  - EMPHYSEMA [None]
  - HISTOPLASMOSIS [None]
  - IMMUNOSUPPRESSION [None]
  - LIVER DISORDER [None]
  - LUNG DISORDER [None]
  - OSTEONECROSIS [None]
  - OSTEOPOROSIS [None]
  - PNEUMONIA [None]
